FAERS Safety Report 17629191 (Version 1)
Quarter: 2020Q2

REPORT INFORMATION
  Report Type: Report from Study
  Country: CN (occurrence: CN)
  Receive Date: 20200406
  Receipt Date: 20200406
  Transmission Date: 20200713
  Serious: Yes (Other)
  Sender: FDA-Public Use
  Company Number: CN-ROCHE-2575483

PATIENT

DRUGS (4)
  1. CAPECITABINE. [Suspect]
     Active Substance: CAPECITABINE
     Indication: RECTAL CANCER
     Route: 048
  2. LEUCOVORIN CALCIUM. [Suspect]
     Active Substance: LEUCOVORIN CALCIUM
     Indication: RECTAL CANCER
     Route: 065
  3. 5-FLUOROURACIL [FLUOROURACIL] [Suspect]
     Active Substance: FLUOROURACIL
     Indication: RECTAL CANCER
     Route: 065
  4. OXALIPLATIN. [Suspect]
     Active Substance: OXALIPLATIN
     Indication: RECTAL CANCER
     Route: 065

REACTIONS (11)
  - Leukopenia [Unknown]
  - Nausea [Unknown]
  - Proctitis [Unknown]
  - Hepatic function abnormal [Unknown]
  - Neurotoxicity [Unknown]
  - Anaemia [Unknown]
  - Nervous system disorder [Unknown]
  - Thrombocytopenia [Unknown]
  - Renal impairment [Unknown]
  - Vomiting [Unknown]
  - Fatigue [Unknown]
